FAERS Safety Report 17374952 (Version 1)
Quarter: 2020Q1

REPORT INFORMATION
  Report Type: Spontaneous
  Country: US (occurrence: US)
  Receive Date: 20200204
  Receipt Date: 20200204
  Transmission Date: 20200409
  Serious: Yes (Disabling, Other)
  Sender: FDA-Public Use
  Company Number: None

PATIENT
  Age: 69 Year
  Sex: Male
  Weight: 81.9 kg

DRUGS (8)
  1. FLAXSEED [Concomitant]
     Active Substance: FLAX SEED
  2. TRACE GINSENG + GINKGO [Concomitant]
  3. FAMOTIDINE. [Concomitant]
     Active Substance: FAMOTIDINE
  4. MYRBETRIQ [Suspect]
     Active Substance: MIRABEGRON
     Indication: HYPERTONIC BLADDER
     Dosage: ?          QUANTITY:1 TABLET(S);?
     Route: 048
     Dates: start: 20191103, end: 20191203
  5. FOLIC ACID. [Concomitant]
     Active Substance: FOLIC ACID
  6. MEN^S MULTIVITAMIN 1/DAY [Concomitant]
  7. BETACAROTINE [Concomitant]
  8. VITAMIN D3 [Concomitant]
     Active Substance: CHOLECALCIFEROL

REACTIONS (1)
  - Ocular discomfort [None]

NARRATIVE: CASE EVENT DATE: 20191203
